FAERS Safety Report 8610405-0 (Version None)
Quarter: 2012Q3

REPORT INFORMATION
  Report Type: 
  Country: None (occurrence: None)
  Receive Date: 20120822
  Receipt Date: 20120820
  Transmission Date: 20120928
  Serious: Yes (Hospitalization)
  Sender: FDA-Public Use
  Company Number: US-TEVA-354724USA

PATIENT
  Sex: Female

DRUGS (2)
  1. FENTANYL [Suspect]
     Indication: PAIN
     Route: 062
  2. ACTIQ [Suspect]
     Indication: BREAKTHROUGH PAIN
     Dosage: 800 UG
     Route: 048

REACTIONS (4)
  - PNEUMONIA [None]
  - DRUG INEFFECTIVE [None]
  - PULMONARY EMBOLISM [None]
  - OFF LABEL USE [None]
